FAERS Safety Report 24712244 (Version 1)
Quarter: 2024Q4

REPORT INFORMATION
  Report Type: Spontaneous
  Country: US (occurrence: US)
  Receive Date: 20241209
  Receipt Date: 20241209
  Transmission Date: 20250115
  Serious: No
  Sender: BAYER HEALTHCARE PHARMACEUTICALS INC.
  Company Number: US-BAYER-2024A173234

PATIENT
  Age: 12 Year
  Sex: Male

DRUGS (2)
  1. KOVALTRY [Suspect]
     Active Substance: ANTIHEMOPHILIC FACTOR, HUMAN RECOMBINANT
     Indication: Ligament sprain
     Dosage: KOVALTRY 809 UNITS/ INFUSION/ 1500 UNITS (+/- 10%) ONE TIME EACH DAY
  2. KOVALTRY [Suspect]
     Active Substance: ANTIHEMOPHILIC FACTOR, HUMAN RECOMBINANT
     Indication: Injury

REACTIONS (1)
  - Joint injury [None]

NARRATIVE: CASE EVENT DATE: 20241130
